FAERS Safety Report 5250798-8 (Version None)
Quarter: 2007Q1

REPORT INFORMATION
  Report Type: 
  Country: None (occurrence: None)
  Receive Date: 20070228
  Receipt Date: 20060725
  Transmission Date: 20070707
  Serious: Yes (Other)
  Sender: FDA-Public Use
  Company Number: US-GLAXOSMITHKLINE-A0611328A

PATIENT
  Age: 54 Year
  Sex: Female
  Weight: 89.1 kg

DRUGS (7)
  1. LAMICTAL [Suspect]
     Indication: BIPOLAR DISORDER
     Dosage: 100MG PER DAY
     Route: 048
  2. LITHIUM CARBONATE [Concomitant]
     Dosage: 600MG TWICE PER DAY
     Route: 048
  3. SEROQUEL [Concomitant]
     Dosage: 1000MG AT NIGHT
     Route: 048
  4. WELLBUTRIN XL [Concomitant]
  5. HEADACHE POWDER [Concomitant]
  6. LEXAPRO [Concomitant]
  7. COZAAR [Concomitant]
     Route: 048

REACTIONS (2)
  - PAIN [None]
  - RASH [None]
